FAERS Safety Report 19673143 (Version 1)
Quarter: 2021Q3

REPORT INFORMATION
  Report Type: Spontaneous
  Country: US (occurrence: US)
  Receive Date: 20210809
  Receipt Date: 20210809
  Transmission Date: 20211014
  Serious: Yes (Other)
  Sender: FDA-Public Use
  Company Number: US-ACCORD-153040

PATIENT
  Age: 61 Year
  Sex: Female
  Weight: 67.13 kg

DRUGS (4)
  1. HERCEPTIN [Suspect]
     Active Substance: TRASTUZUMAB
     Indication: BREAST CANCER
     Dates: start: 20140619, end: 20140911
  2. NEULASTA [Concomitant]
     Active Substance: PEGFILGRASTIM
  3. DOCETAXEL ACCORD [Suspect]
     Active Substance: DOCETAXEL
     Indication: BREAST CANCER
     Dosage: EVERY THREE WEEKS
     Dates: start: 20140619, end: 20140911
  4. PARAPLATIN [Suspect]
     Active Substance: CARBOPLATIN
     Indication: BREAST CANCER
     Dates: start: 20140619, end: 20140911

REACTIONS (1)
  - Alopecia [Not Recovered/Not Resolved]

NARRATIVE: CASE EVENT DATE: 201503
